FAERS Safety Report 22641672 (Version 1)
Quarter: 2023Q2

REPORT INFORMATION
  Report Type: Spontaneous
  Country: US (occurrence: US)
  Receive Date: 20230626
  Receipt Date: 20230626
  Transmission Date: 20230722
  Serious: No
  Sender: FDA-Public Use
  Company Number: US-ABBVIE-5303776

PATIENT
  Sex: Female

DRUGS (2)
  1. UBRELVY [Suspect]
     Active Substance: UBROGEPANT
     Indication: Product used for unknown indication
     Route: 048
  2. NURTEC ODT [Suspect]
     Active Substance: RIMEGEPANT SULFATE
     Indication: Product used for unknown indication
     Dosage: TIME INTERVAL: AS NECESSARY: 1 TABLET ON OR UNDER THE TONGUE AT ONSET OF HEADACHE, MAX 1 TABLET I...
     Route: 048

REACTIONS (3)
  - Abdominal discomfort [Unknown]
  - Migraine [Unknown]
  - Diarrhoea [Unknown]
